FAERS Safety Report 7902520-1 (Version None)
Quarter: 2011Q4

REPORT INFORMATION
  Report Type: 
  Country: None (occurrence: None)
  Receive Date: 20111108
  Receipt Date: 20111026
  Transmission Date: 20120403
  Serious: Yes (Hospitalization)
  Sender: FDA-Public Use
  Company Number: ES-ELI_LILLY_AND_COMPANY-ES201110007110

PATIENT
  Sex: Female
  Weight: 73 kg

DRUGS (7)
  1. ARTILOG [Concomitant]
     Dosage: 200 MG, QD
     Route: 048
  2. FORTEO [Suspect]
     Indication: OSTEOPOROSIS
     Dosage: 20 UG, QD
     Route: 058
     Dates: start: 20101022
  3. IDAPTAN [Concomitant]
     Indication: CARDIOVASCULAR DISORDER
     Dosage: 20 MG, QD
     Route: 048
  4. NOCTAMID [Concomitant]
     Indication: INSOMNIA
     Dosage: 1 MG, QD
     Route: 048
  5. NATECAL D [Concomitant]
     Indication: OSTEOPOROSIS
     Dosage: 60 MG, QD
     Route: 048
  6. PANTOPRAZOLE [Concomitant]
     Indication: GASTRIC DISORDER
     Dosage: 40 MG, QD
     Route: 048
  7. VALSARTAN [Concomitant]
     Indication: HYPERTENSION
     Dosage: 80 MG, QD
     Route: 048

REACTIONS (4)
  - JOINT DISLOCATION [None]
  - WRIST FRACTURE [None]
  - RADIUS FRACTURE [None]
  - FALL [None]
